FAERS Safety Report 6152714-3 (Version None)
Quarter: 2009Q2

REPORT INFORMATION
  Report Type: 
  Country: None (occurrence: None)
  Receive Date: 20090413
  Receipt Date: 20090406
  Transmission Date: 20091009
  Serious: Yes (Hospitalization)
  Sender: FDA-Public Use
  Company Number: NL-B.I. PHARMACEUTICALS,INC./RIDGEFIELD-2009-BP-04481YA

PATIENT
  Sex: Male

DRUGS (1)
  1. OMNIC CAPSULE [Suspect]
     Indication: BENIGN PROSTATIC HYPERPLASIA
     Dates: start: 20040306

REACTIONS (1)
  - ANGINA PECTORIS [None]
